FAERS Safety Report 8796820 (Version 2)
Quarter: 2015Q1

REPORT INFORMATION
  Report Type: Report from Study
  Country: US (occurrence: US)
  Receive Date: 20120919
  Receipt Date: 20150304
  Transmission Date: 20150721
  Serious: Yes (Death)
  Sender: FDA-Public Use
  Company Number: US-ROCHE-1102316

PATIENT
  Sex: Male

DRUGS (26)
  1. XELODA [Suspect]
     Active Substance: CAPECITABINE
     Indication: METASTASES TO LUNG
  2. FIBERCON [Concomitant]
     Active Substance: CALCIUM POLYCARBOPHIL
  3. FLOMAX (UNITED STATES) [Concomitant]
     Route: 065
  4. COLACE [Concomitant]
     Active Substance: DOCUSATE SODIUM
  5. DECADRON [Concomitant]
     Active Substance: DEXAMETHASONE
     Route: 042
  6. TAGAMET [Concomitant]
     Active Substance: CIMETIDINE
     Route: 065
  7. OXYCONTIN [Concomitant]
     Active Substance: OXYCODONE HYDROCHLORIDE
     Route: 048
  8. MORPHINE SULFATE. [Concomitant]
     Active Substance: MORPHINE SULFATE
  9. ALOXI [Concomitant]
     Active Substance: PALONOSETRON HYDROCHLORIDE
     Route: 042
  10. FLAGYL [Concomitant]
     Active Substance: METRONIDAZOLE\METRONIDAZOLE HYDROCHLORIDE
  11. CIPRO [Concomitant]
     Active Substance: CIPROFLOXACIN HYDROCHLORIDE
  12. XELODA [Suspect]
     Active Substance: CAPECITABINE
     Indication: PANCREATIC CARCINOMA
     Route: 065
     Dates: start: 200408
  13. DURAGESIC [Concomitant]
     Active Substance: FENTANYL
     Route: 065
  14. TYLENOL [Concomitant]
     Active Substance: ACETAMINOPHEN
  15. LEVAQUIN [Concomitant]
     Active Substance: LEVOFLOXACIN
  16. VITAMIN C [Concomitant]
     Active Substance: ASCORBIC ACID
  17. BENADRYL [Concomitant]
     Active Substance: DIPHENHYDRAMINE HYDROCHLORIDE
     Route: 042
  18. COUMADIN [Concomitant]
     Active Substance: WARFARIN SODIUM
     Route: 065
  19. PEPCID [Concomitant]
     Active Substance: FAMOTIDINE
     Route: 042
  20. PHENERGAN [Concomitant]
     Active Substance: PROMETHAZINE HYDROCHLORIDE
     Route: 042
  21. NEULASTA [Concomitant]
     Active Substance: PEGFILGRASTIM
     Route: 058
  22. OXYCODONE [Concomitant]
     Active Substance: OXYCODONE
     Route: 065
  23. AVASTIN [Suspect]
     Active Substance: BEVACIZUMAB
     Indication: PANCREATIC CARCINOMA
     Route: 042
     Dates: start: 20050207
  24. AVASTIN [Suspect]
     Active Substance: BEVACIZUMAB
     Indication: METASTASES TO LUNG
  25. GEMZAR [Suspect]
     Active Substance: GEMCITABINE HYDROCHLORIDE
     Indication: PRODUCT USED FOR UNKNOWN INDICATION
     Route: 065
  26. HERBAL LAXATIVE (UNK INGREDIENTS) [Concomitant]

REACTIONS (16)
  - Flatulence [Unknown]
  - Cholangitis [Recovering/Resolving]
  - Inguinal hernia [Unknown]
  - Weight decreased [Unknown]
  - Jaundice [Unknown]
  - Colitis [Unknown]
  - Gastrooesophageal reflux disease [Unknown]
  - Decreased appetite [Unknown]
  - Death [Fatal]
  - Fatigue [Unknown]
  - Abdominal distension [Unknown]
  - Urinary retention [Unknown]
  - Urinary tract disorder [Unknown]
  - Off label use [Unknown]
  - Constipation [Unknown]
  - Disease progression [Unknown]
